FAERS Safety Report 24388367 (Version 1)
Quarter: 2024Q4

REPORT INFORMATION
  Report Type: Spontaneous
  Country: US (occurrence: US)
  Receive Date: 20241002
  Receipt Date: 20241002
  Transmission Date: 20250114
  Serious: No
  Sender: MERCK
  Company Number: US-009507513-2409USA008372

PATIENT
  Sex: Female

DRUGS (1)
  1. KEYTRUDA [Suspect]
     Active Substance: PEMBROLIZUMAB
     Dosage: UNK

REACTIONS (6)
  - Lethargy [Unknown]
  - Asthenia [Unknown]
  - Dyspnoea [Unknown]
  - Arthralgia [Unknown]
  - Constipation [Unknown]
  - Brain fog [Unknown]
